FAERS Safety Report 10844897 (Version 1)
Quarter: 2015Q1

REPORT INFORMATION
  Report Type: Spontaneous
  Country: US (occurrence: US)
  Receive Date: 20150220
  Receipt Date: 20150220
  Transmission Date: 20150721
  Serious: Yes (Other)
  Sender: FDA-Public Use
  Company Number: US-ACTELION-A-NJ2015-112907

PATIENT
  Age: 71 Year
  Sex: Female

DRUGS (4)
  1. SILDENAFIL. [Concomitant]
     Active Substance: SILDENAFIL
  2. COUMADIN [Concomitant]
     Active Substance: WARFARIN SODIUM
  3. TYVASO [Suspect]
     Active Substance: TREPROSTINIL
     Indication: PRODUCT USED FOR UNKNOWN INDICATION
     Dosage: 9 BREATHS QID
     Route: 055
  4. TRACLEER [Suspect]
     Active Substance: BOSENTAN\BOSENTAN MONOHYDRATE
     Indication: PULMONARY ARTERIAL HYPERTENSION
     Dosage: UNK
     Route: 048

REACTIONS (9)
  - Hernia repair [Unknown]
  - Throat irritation [Unknown]
  - Stress [Unknown]
  - Stomatitis [Unknown]
  - Oesophageal pain [Unknown]
  - Epistaxis [Unknown]
  - Productive cough [Unknown]
  - Oedema peripheral [Unknown]
  - Musculoskeletal chest pain [Unknown]
